FAERS Safety Report 9993011 (Version 1)
Quarter: 2014Q1

REPORT INFORMATION
  Report Type: Spontaneous
  Country: US (occurrence: US)
  Receive Date: 20140310
  Receipt Date: 20140310
  Transmission Date: 20141002
  Serious: Yes (Hospitalization)
  Sender: FDA-Public Use
  Company Number: US-B.I. PHARMACEUTICALS,INC./RIDGEFIELD-2014-BI-09879BP

PATIENT
  Age: 64 Year
  Sex: Female
  Weight: 113 kg

DRUGS (2)
  1. MIRAPEX [Suspect]
     Indication: PRODUCT USED FOR UNKNOWN INDICATION
     Dosage: 0.5 MG
     Route: 048
     Dates: start: 201302
  2. SPIRIVA [Suspect]
     Indication: PULMONARY HYPERTENSION
     Route: 055
     Dates: start: 201112

REACTIONS (6)
  - Urinary tract infection [Recovered/Resolved]
  - Pneumonia viral [Not Recovered/Not Resolved]
  - Kidney infection [Unknown]
  - White blood cell count increased [Unknown]
  - Blood potassium increased [Unknown]
  - Off label use [Unknown]
